FAERS Safety Report 4885762-1 (Version None)
Quarter: 2006Q1

REPORT INFORMATION
  Report Type: 
  Country: None (occurrence: None)
  Receive Date: 20060117
  Receipt Date: 20060103
  Transmission Date: 20060701
  Serious: Yes (Other)
  Sender: FDA-Public Use
  Company Number: 2006002479

PATIENT
  Age: 88 Year
  Sex: Female

DRUGS (11)
  1. PREDNISOLONE [Suspect]
     Indication: ILL-DEFINED DISORDER
     Dosage: 7.5 MG (2.5 MG, 3 IN 1 D), ORAL
     Route: 048
  2. CITALOPRAM HYDROBROMIDE [Suspect]
     Indication: ILL-DEFINED DISORDER
     Dosage: 30 MG, (30 MG, 1 IN 1 D), ORAL
     Route: 048
  3. STILNOCT (ZOLPIDEM TARTRATE) [Concomitant]
  4. TRADOLAN (TRAMADOL HYDROCHLORIDE) [Concomitant]
  5. GABAPENTIN [Concomitant]
  6. PROPAVAN (PROPIOMAZINE MALEATE) [Concomitant]
  7. DUROFERON (FERROUS SULFATE) [Concomitant]
  8. LEVOTHYROXINE SODIUM [Concomitant]
  9. TENORMIN [Concomitant]
  10. SPIRONOLAKTON  ACO   (SPIRONOLACTONE) [Concomitant]
  11. SOBRIL (OXAZEPAM) [Concomitant]

REACTIONS (5)
  - ANAEMIA [None]
  - HAEMATEMESIS [None]
  - MELAENA [None]
  - REFUSAL OF TREATMENT BY PATIENT [None]
  - REFUSAL OF TREATMENT BY RELATIVE [None]
